FAERS Safety Report 19083614 (Version 3)
Quarter: 2021Q2

REPORT INFORMATION
  Report Type: Report from Study
  Country: DK (occurrence: DK)
  Receive Date: 20210401
  Receipt Date: 20210510
  Transmission Date: 20210717
  Serious: Yes (Hospitalization)
  Sender: FDA-Public Use
  Company Number: DK-ROCHE-2742988

PATIENT
  Age: 74 Year
  Sex: Male
  Weight: 76.7 kg

DRUGS (31)
  1. OBINUTUZUMAB. [Suspect]
     Active Substance: OBINUTUZUMAB
     Indication: B-CELL LYMPHOMA
     Dosage: TOTAL VOLUME PRIOR TO AE AND SAE 290 ML AT 11:40 AM?04:16 PM.
     Route: 042
     Dates: start: 20201215
  2. CETIRIZINE [Concomitant]
     Active Substance: CETIRIZINE HYDROCHLORIDE
     Dosage: ON 06?JAN?2021, THE PATIENT RECEIVED DOSE OF CETIRIZINE.
     Route: 048
     Dates: start: 20201215, end: 20201215
  3. CETIRIZINE [Concomitant]
     Active Substance: CETIRIZINE HYDROCHLORIDE
     Route: 048
     Dates: start: 20201230, end: 20201230
  4. DEXAMETHASONE. [Concomitant]
     Active Substance: DEXAMETHASONE
     Route: 042
     Dates: start: 20210224, end: 20210224
  5. MAGNESIUM [Concomitant]
     Active Substance: MAGNESIUM
     Indication: HYPOMAGNESAEMIA
     Dates: start: 20210108, end: 20210204
  6. SALINE [Concomitant]
     Active Substance: SODIUM CHLORIDE
     Dates: start: 20201219, end: 20201219
  7. RO7082859 (CD20/C3 T?CELL BISPECIFIC MAB) [Suspect]
     Active Substance: GLOFITAMAB
     Indication: B-CELL LYMPHOMA
     Dosage: DATE OF MOST RECENT DOSE OF RO7082859OF 2.5 MG PRIOR TO SAE ONSET: 30/DEC/2020 AT 02:07 PM?6:11 PM.
     Route: 042
     Dates: start: 20201230
  8. APIXABAN [Concomitant]
     Active Substance: APIXABAN
     Dates: start: 1975
  9. PFIZER?BIONTECH COVID?19 VACCINE [Concomitant]
     Active Substance: TOZINAMERAN
     Dates: start: 20210305, end: 20210305
  10. PANODIL [Concomitant]
     Active Substance: ACETAMINOPHEN
     Route: 048
     Dates: start: 20201215, end: 20201215
  11. CETIRIZINE [Concomitant]
     Active Substance: CETIRIZINE HYDROCHLORIDE
     Route: 048
     Dates: start: 20210106, end: 20210106
  12. DEXAMETHASONE. [Concomitant]
     Active Substance: DEXAMETHASONE
     Route: 042
     Dates: start: 20210202, end: 20210202
  13. DEXAMETHASONE. [Concomitant]
     Active Substance: DEXAMETHASONE
     Route: 042
     Dates: start: 20210113, end: 20210113
  14. DEXAMETHASONE. [Concomitant]
     Active Substance: DEXAMETHASONE
     Route: 042
     Dates: start: 20210317, end: 20210317
  15. ZOPICLONE [Concomitant]
     Active Substance: ZOPICLONE
     Indication: INSOMNIA
     Dates: start: 20210114
  16. CETIRIZINE [Concomitant]
     Active Substance: CETIRIZINE HYDROCHLORIDE
     Route: 048
     Dates: start: 20201216, end: 20201216
  17. DEXAMETHASONE. [Concomitant]
     Active Substance: DEXAMETHASONE
     Route: 042
     Dates: start: 20210106, end: 20210106
  18. OXYCODON [Concomitant]
     Active Substance: OXYCODONE
     Indication: TUMOUR PAIN
     Dates: start: 20201215
  19. OXYGEN. [Concomitant]
     Active Substance: OXYGEN
     Indication: HYPOXIA
  20. TOCILIZUMAB. [Suspect]
     Active Substance: TOCILIZUMAB
     Indication: CYTOKINE RELEASE SYNDROME
     Dosage: ON 01/JAN/2021, PATIENT RECEIVED MOST RECENT DOSE OF TOCILIZUMAB 650.4 MG, AT 9:34 AM.?ON 07/JAN/202
     Route: 042
     Dates: start: 20201230
  21. METHYLPREDNISOLONE. [Concomitant]
     Active Substance: METHYLPREDNISOLONE
     Route: 042
     Dates: start: 20201215, end: 20201215
  22. DEXAMETHASONE. [Concomitant]
     Active Substance: DEXAMETHASONE
     Route: 042
     Dates: start: 20210106, end: 20210106
  23. POLATUZUMAB VEDOTIN. [Suspect]
     Active Substance: POLATUZUMAB VEDOTIN
     Indication: B-CELL LYMPHOMA
     Dosage: TOTAL VOLUME PRIOR TO AE AND SAE 107 ML AT 11:08 AM?11:40 AM
     Route: 042
     Dates: start: 20201216
  24. DEXAMETHASONE. [Concomitant]
     Active Substance: DEXAMETHASONE
     Route: 042
     Dates: start: 20201230, end: 20201230
  25. ALLOPURINOL. [Concomitant]
     Active Substance: ALLOPURINOL
     Dates: start: 20201216
  26. MACROGOL 3350 [Concomitant]
     Active Substance: POLYETHYLENE GLYCOL 3350
     Dates: start: 20201215, end: 20210115
  27. FUROSEMIDE. [Concomitant]
     Active Substance: FUROSEMIDE
     Indication: OEDEMA PERIPHERAL
     Dates: start: 20210109, end: 20210115
  28. FUROSEMIDE. [Concomitant]
     Active Substance: FUROSEMIDE
     Dates: start: 20210224
  29. CHLORAMPHENICOL;DEXAMETHASONE [Concomitant]
     Indication: EYE IRRITATION
     Dates: start: 20210114
  30. TINZAPARIN [Concomitant]
     Active Substance: TINZAPARIN
     Dates: start: 20210108, end: 20210123
  31. SODIUM PICOSULFATE [Concomitant]
     Active Substance: SODIUM PICOSULFATE
     Dates: start: 20210109

REACTIONS (5)
  - Cytokine release syndrome [Recovered/Resolved]
  - Cytokine release syndrome [Recovered/Resolved]
  - Pyrexia [Recovered/Resolved]
  - Pyrexia [Recovered/Resolved]
  - Dyspnoea [Recovered/Resolved]

NARRATIVE: CASE EVENT DATE: 20201216
